FAERS Safety Report 7771780-2 (Version None)
Quarter: 2011Q3

REPORT INFORMATION
  Report Type: 
  Country: None (occurrence: None)
  Receive Date: 20110922
  Receipt Date: 20110912
  Transmission Date: 20111222
  Serious: Yes (Other)
  Sender: FDA-Public Use
  Company Number: US-ELI_LILLY_AND_COMPANY-US201109003686

PATIENT
  Sex: Female

DRUGS (4)
  1. HUMALOG MIX 75/25 [Suspect]
     Indication: TYPE 2 DIABETES MELLITUS
     Dosage: 72 U, EACH MORNING
     Dates: start: 20060101
  2. HUMALOG [Suspect]
  3. HUMALOG MIX 75/25 [Suspect]
     Dosage: 92 U, EACH EVENING
     Dates: start: 20060101
  4. METFORMIN [Concomitant]
     Dosage: 1000 MG, QD

REACTIONS (2)
  - LUNG NEOPLASM MALIGNANT [None]
  - DRUG DISPENSING ERROR [None]
